FAERS Safety Report 4344744-9 (Version None)
Quarter: 2004Q2

REPORT INFORMATION
  Report Type: 
  Country: None (occurrence: None)
  Receive Date: 20040423
  Receipt Date: 20040420
  Transmission Date: 20050107
  Serious: Yes (Hospitalization)
  Sender: FDA-Public Use
  Company Number: 200414259GDDC

PATIENT
  Age: 66 Year
  Sex: Female
  Weight: 49.73 kg

DRUGS (8)
  1. TAXOTERE [Suspect]
     Indication: OVARIAN CANCER
     Route: 042
     Dates: start: 20040324, end: 20040324
  2. CISPLATIN [Suspect]
     Indication: OVARIAN CANCER
     Route: 042
     Dates: start: 20040324, end: 20040324
  3. ATIVAN [Concomitant]
     Route: 048
     Dates: start: 20040324, end: 20040324
  4. AVIL [Concomitant]
     Route: 042
     Dates: start: 20040324, end: 20040324
  5. ONDANSETRON HCL [Concomitant]
     Route: 042
     Dates: start: 20040324, end: 20040324
  6. DEXAMETHASONE [Concomitant]
     Route: 048
     Dates: start: 20040323, end: 20040325
  7. MGO [Concomitant]
     Route: 048
  8. FEROBA [Concomitant]
     Route: 048

REACTIONS (1)
  - OTOTOXICITY [None]
